FAERS Safety Report 4406835-3 (Version None)
Quarter: 2004Q3

REPORT INFORMATION
  Report Type: 
  Country: None (occurrence: None)
  Receive Date: 20040715
  Receipt Date: 20040701
  Transmission Date: 20050211
  Serious: Yes (Other)
  Sender: FDA-Public Use
  Company Number: S04-SWE-02776-01

PATIENT
  Age: 86 Year
  Sex: Female

DRUGS (4)
  1. CITALOPRAM HYDROBROMIDE [Suspect]
  2. ALLOPURINOL [Suspect]
  3. TAMOXIFEN CITRATE [Suspect]
  4. AMITRIPTYLINE HCL [Suspect]

REACTIONS (1)
  - NEUTROPENIA [None]
